FAERS Safety Report 18191545 (Version 1)
Quarter: 2020Q3

REPORT INFORMATION
  Report Type: Other
  Country: IT (occurrence: IT)
  Receive Date: 20200825
  Receipt Date: 20200825
  Transmission Date: 20201103
  Serious: Yes (Death)
  Sender: FDA-Public Use
  Company Number: IT-INNOGENIX, LLC-2088996

PATIENT
  Age: 48 Year
  Sex: Female

DRUGS (6)
  1. CLOTIAPINE [Suspect]
     Active Substance: CLOTHIAPINE
     Route: 065
  2. CLONAZEPAM. [Suspect]
     Active Substance: CLONAZEPAM
     Route: 065
  3. HALOPERIDOL. [Suspect]
     Active Substance: HALOPERIDOL
     Indication: PRODUCT USED FOR UNKNOWN INDICATION
     Route: 065
  4. FLUVOXAMINE MALEATE. [Suspect]
     Active Substance: FLUVOXAMINE MALEATE
     Route: 065
  5. GABAPENTIN. [Suspect]
     Active Substance: GABAPENTIN
     Route: 065
  6. PROPRANOLOL HYDROCHLORIDE. [Suspect]
     Active Substance: PROPRANOLOL HYDROCHLORIDE
     Route: 065

REACTIONS (3)
  - Unresponsive to stimuli [Fatal]
  - Toxicity to various agents [Fatal]
  - Multi-organ disorder [Fatal]
